FAERS Safety Report 9472772 (Version 2)
Quarter: 2013Q4

REPORT INFORMATION
  Report Type: Spontaneous
  Country: US (occurrence: US)
  Receive Date: 20130823
  Receipt Date: 20131023
  Transmission Date: 20140711
  Serious: Yes (Other)
  Sender: FDA-Public Use
  Company Number: US-PFIZER INC-2013242965

PATIENT
  Age: 67 Year
  Sex: Female
  Weight: 92.1 kg

DRUGS (16)
  1. PRISTIQ [Suspect]
     Indication: NERVOUSNESS
     Dosage: 50 MG, 1X/DAY
     Route: 048
     Dates: start: 2008
  2. EFFEXOR [Suspect]
     Indication: NERVOUSNESS
     Dosage: UNK
  3. LIPITOR [Concomitant]
     Dosage: 40 MG, 1X/DAY
     Route: 048
  4. ASPIRIN (E.C.) [Concomitant]
     Dosage: 325 MG, 1X/DAY
     Route: 048
  5. BUMETANIDE [Concomitant]
     Dosage: 0.5 MG, 1X/DAY
     Route: 048
  6. LISINOPRIL [Concomitant]
     Indication: HYPERTENSION
     Dosage: 20 MG, 1X/DAY
     Route: 048
  7. METOPROLOL [Concomitant]
     Indication: HYPERTENSION
     Dosage: UNK,1XDAY
  8. METOPROLOL TARTRATE [Concomitant]
     Dosage: 25 MG, 2X/DAY
     Route: 048
  9. FAMOTIDINE [Concomitant]
     Dosage: 40 MG, 1X/DAY (AT BEDTIME)
     Route: 048
  10. TRAMADOL HYDROCHLORIDE [Concomitant]
     Dosage: 50 MG, 2 TABLETS ONCE A DAY
     Route: 048
  11. VITAMIN D [Concomitant]
     Dosage: 50000 IU, WEEKLY
     Route: 048
  12. RANEXA [Concomitant]
     Dosage: 500 MG, 2X/DAY
     Route: 048
  13. NITROGLYCERIN [Concomitant]
     Indication: CHEST PAIN
     Dosage: 0.4 MG, 3X/DAY AS NEEDED, 5 MIN APART
     Route: 060
  14. LANTUS [Concomitant]
     Dosage: 100 UNIT/ML SOLUTION, 30 UNITS ONCE A DAY
     Route: 058
  15. TRAZODONE HYDROCHLORIDE [Concomitant]
     Indication: INSOMNIA
     Dosage: 100 MG, 1X/DAY AT BEDTIME AS NEEDED
  16. MULTIVITAMINS [Concomitant]
     Dosage: AS DIRECTED 1X/DAY
     Route: 048

REACTIONS (13)
  - Urinary tract infection [Unknown]
  - Drug ineffective [Unknown]
  - Crying [Unknown]
  - Amnesia [Unknown]
  - Pain [Unknown]
  - Feeling abnormal [Unknown]
  - Hypersensitivity [Unknown]
  - Fall [Unknown]
  - Abdominal distension [Unknown]
  - Pollakiuria [Unknown]
  - Swelling [Unknown]
  - Dysuria [Unknown]
  - Influenza [Unknown]
